FAERS Safety Report 23218658 (Version 1)
Quarter: 2023Q4

REPORT INFORMATION
  Report Type: Report from Study
  Country: US (occurrence: US)
  Receive Date: 20231122
  Receipt Date: 20231122
  Transmission Date: 20240110
  Serious: Yes (Death)
  Sender: FDA-Public Use
  Company Number: US-JNJFOC-20231157348

PATIENT
  Age: 67 Year
  Sex: Male

DRUGS (1)
  1. CILTACABTAGENE AUTOLEUCEL [Suspect]
     Active Substance: CILTACABTAGENE AUTOLEUCEL
     Indication: Plasma cell myeloma
     Dosage: TOTAL NUMBER OF CELLS ?ADMINISTERED: 32.8, TOTAL CELLS EXPONENT ?VALUE: 6, NO # OF LINES OF PRIOR ?T
     Route: 042
     Dates: start: 2022

REACTIONS (2)
  - Cardiac amyloidosis [Fatal]
  - Gastrointestinal amyloidosis [Fatal]
